FAERS Safety Report 22231083 (Version 1)
Quarter: 2023Q2

REPORT INFORMATION
  Report Type: Spontaneous
  Country: US (occurrence: None)
  Receive Date: 20230420
  Receipt Date: 20230420
  Transmission Date: 20230721
  Serious: No
  Sender: FDA-Public Use
  Company Number: US-ROCHE-3113998

PATIENT
  Sex: Female

DRUGS (1)
  1. KADCYLA [Suspect]
     Active Substance: ADO-TRASTUZUMAB EMTANSINE
     Indication: Breast cancer female
     Dosage: INFUSE 260MG INTRAVENOUSLY EVERY 21 DAYS FOR 5 CYCLES
     Route: 042

REACTIONS (1)
  - Diarrhoea [Not Recovered/Not Resolved]
